FAERS Safety Report 7635089-X (Version None)
Quarter: 2011Q3

REPORT INFORMATION
  Report Type: 
  Country: None (occurrence: None)
  Receive Date: 20110726
  Receipt Date: 20110714
  Transmission Date: 20111222
  Serious: Yes (Other)
  Sender: FDA-Public Use
  Company Number: GB-RB-027160-11

PATIENT
  Age: 68 Year
  Sex: Male

DRUGS (3)
  1. SCHOLL CORN REMOVER [Suspect]
     Indication: SKIN LESION EXCISION
  2. CARDIOVASCULAR MEDICATIONS [Concomitant]
  3. WARFARIN [Concomitant]

REACTIONS (1)
  - ULCER [None]
